FAERS Safety Report 16889804 (Version 1)
Quarter: 2019Q4

REPORT INFORMATION
  Report Type: Spontaneous
  Country: None (occurrence: IL)
  Receive Date: 20191007
  Receipt Date: 20191007
  Transmission Date: 20200122
  Serious: Yes (Hospitalization)
  Sender: FDA-Public Use
  Company Number: IL-KNIGHT THERAPEUTICS (USA) INC.-2075351

PATIENT
  Sex: Female

DRUGS (1)
  1. IMPAVIDO [Suspect]
     Active Substance: MILTEFOSINE
     Indication: CUTANEOUS LEISHMANIASIS

REACTIONS (3)
  - Off label use [None]
  - Therapeutic product effect incomplete [None]
  - Blood creatinine increased [Recovered/Resolved]
